FAERS Safety Report 6721441-3 (Version None)
Quarter: 2010Q2

REPORT INFORMATION
  Report Type: 
  Country: None (occurrence: None)
  Receive Date: 20100512
  Receipt Date: 20100505
  Transmission Date: 20101027
  Serious: Yes (Hospitalization)
  Sender: FDA-Public Use
  Company Number: GR-ABBOTT-10P-066-0642557-00

PATIENT
  Age: 31 Year
  Sex: Female

DRUGS (2)
  1. HUMIRA [Suspect]
     Indication: RHEUMATOID ARTHRITIS
     Route: 058
     Dates: start: 20090701, end: 20100404
  2. METHOTREXATE SODIUM [Concomitant]
     Indication: RHEUMATOID ARTHRITIS

REACTIONS (3)
  - COLOUR BLINDNESS ACQUIRED [None]
  - EYE PAIN [None]
  - VISION BLURRED [None]
